FAERS Safety Report 9423252 (Version 1)
Quarter: 2013Q3

REPORT INFORMATION
  Report Type: Spontaneous
  Country: US (occurrence: US)
  Receive Date: 20130726
  Receipt Date: 20130726
  Transmission Date: 20140515
  Serious: No
  Sender: FDA-Public Use
  Company Number: US-PFIZER INC-2013218802

PATIENT
  Age: 60 Year
  Sex: Male
  Weight: 107 kg

DRUGS (5)
  1. SOLU-MEDROL [Suspect]
     Indication: MULTIPLE SCLEROSIS
     Dosage: 1000 MG, 1X/DAY
     Dates: start: 201303, end: 2013
  2. SOLU-MEDROL [Interacting]
     Dosage: 1000 MG, 1X/DAY
     Dates: start: 20130722
  3. INSULIN [Interacting]
     Indication: DIABETES MELLITUS
     Dosage: UNK
  4. METFORMIN [Concomitant]
     Indication: DIABETES MELLITUS
     Dosage: 1000 MG, 2X/DAY
  5. STARLIX [Concomitant]
     Indication: DIABETES MELLITUS
     Dosage: UNK, 2X/DAY

REACTIONS (2)
  - Drug ineffective [Unknown]
  - Drug interaction [Unknown]
